FAERS Safety Report 17051898 (Version 1)
Quarter: 2019Q4

REPORT INFORMATION
  Report Type: Spontaneous
  Country: TR (occurrence: TR)
  Receive Date: 20191120
  Receipt Date: 20191120
  Transmission Date: 20200122
  Serious: Yes (Hospitalization)
  Sender: FDA-Public Use
  Company Number: TR-FERRINGPH-2019FE07536

PATIENT
  Age: 44 Year
  Sex: Female

DRUGS (2)
  1. PICOPREP [Suspect]
     Active Substance: ANHYDROUS CITRIC ACID\MAGNESIUM OXIDE\SODIUM PICOSULFATE
     Indication: BOWEL PREPARATION
     Dosage: 2 X 16.1 G
     Route: 048
     Dates: start: 20191026, end: 20191026
  2. BEKUNIS                            /01251601/ [Concomitant]
     Indication: CONSTIPATION
     Dosage: 5 TABLETS
     Route: 048
     Dates: start: 20191026, end: 20191026

REACTIONS (5)
  - Syncope [Recovered/Resolved]
  - Abdominal pain [Recovered/Resolved]
  - Fall [Recovered/Resolved]
  - Palpitations [Recovered/Resolved]
  - Flushing [Recovered/Resolved]

NARRATIVE: CASE EVENT DATE: 20191026
